FAERS Safety Report 5490784-6 (Version None)
Quarter: 2007Q4

REPORT INFORMATION
  Report Type: 
  Country: None (occurrence: None)
  Receive Date: 20071019
  Receipt Date: 20071012
  Transmission Date: 20080405
  Serious: Yes (Other)
  Sender: FDA-Public Use
  Company Number: CA-ASTRAZENECA-2007UW24042

PATIENT
  Age: 67 Year
  Sex: Male

DRUGS (10)
  1. CRESTOR [Suspect]
     Route: 048
  2. ATACAND HCT [Concomitant]
  3. DOCUSATE SODIUM [Concomitant]
  4. ASPIRIN [Concomitant]
  5. FLOMAX [Concomitant]
  6. GLUCOSAMINE [Concomitant]
  7. NITROLINGUAL PUMP [Concomitant]
  8. OMEGA 3 SELECT [Concomitant]
  9. SENOKOT [Concomitant]
  10. TYLENOL (CAPLET) [Concomitant]

REACTIONS (6)
  - ARTHRALGIA [None]
  - DIZZINESS [None]
  - DYSPNOEA [None]
  - FATIGUE [None]
  - GAIT DISTURBANCE [None]
  - MYALGIA [None]
